FAERS Safety Report 9396072 (Version 1)
Quarter: 2013Q3

REPORT INFORMATION
  Report Type: Spontaneous
  Country: DE (occurrence: None)
  Receive Date: 20130708
  Receipt Date: 20130708
  Transmission Date: 20140515
  Serious: Yes (Congenital Anomaly, Other)
  Sender: FDA-Public Use
  Company Number: VAL_02607_2013

PATIENT
  Sex: Female

DRUGS (4)
  1. METOPROLOL (METOPROLOL) [Suspect]
     Indication: PRODUCT USED FOR UNKNOWN INDICATION
     Dosage: 47.5 MG [MATERNAL DOSE (6-38 GESTATIONAL WEEK), MG/DAY; TRANSPLACENTAL FETAL EXPOSURE))
  2. MIRTAZAPINE (MIRTAZAPINE) [Suspect]
     Indication: DEPRESSION
     Route: 048
  3. BISOPROLOL [Suspect]
     Indication: HYPERTONIA
     Dosage: 0.5 MG  BID, [MATERNAL DOSE (0-6 GESATIONAL WEEKS, MG/DAY; TRANSPLACENTAL FETAL EXPOSURE))
  4. FOLIC ACID [Concomitant]

REACTIONS (4)
  - Maternal drugs affecting foetus [None]
  - Renal aplasia [None]
  - Congenital hydronephrosis [None]
  - Low birth weight baby [None]
